FAERS Safety Report 5671913-8 (Version None)
Quarter: 2008Q1

REPORT INFORMATION
  Report Type: 
  Country: None (occurrence: None)
  Receive Date: 20080317
  Receipt Date: 20080317
  Transmission Date: 20080703
  Serious: Yes (Death)
  Sender: FDA-Public Use
  Company Number: None

PATIENT
  Age: 55 Year
  Sex: Male
  Weight: 70.3075 kg

DRUGS (2)
  1. CITALOPRAM HYDROBROMIDE [Suspect]
     Indication: STRESS
     Dosage: 1 DAILY PO
     Route: 048
     Dates: start: 20080104, end: 20080105
  2. ZOLPIDEM [Suspect]
     Indication: INSOMNIA
     Dosage: 1 BEDTIME PO
     Route: 048
     Dates: start: 20080105, end: 20080105

REACTIONS (8)
  - ABNORMAL SLEEP-RELATED EVENT [None]
  - AMNESIA [None]
  - GUN SHOT WOUND [None]
  - RESPIRATORY ARREST [None]
  - SELF INJURIOUS BEHAVIOUR [None]
  - SLEEP TALKING [None]
  - SOMNAMBULISM [None]
  - THINKING ABNORMAL [None]
